FAERS Safety Report 5057619-7 (Version None)
Quarter: 2006Q3

REPORT INFORMATION
  Report Type: 
  Country: None (occurrence: None)
  Receive Date: 20060721
  Receipt Date: 20051227
  Transmission Date: 20061208
  Serious: No
  Sender: FDA-Public Use
  Company Number: US-GLAXOSMITHKLINE-A0587035A

PATIENT
  Age: 69 Year
  Sex: Female

DRUGS (8)
  1. AVANDIA [Suspect]
     Route: 048
  2. METFORMIN [Concomitant]
  3. CARDIZEM CD [Concomitant]
  4. ZOLOFT [Concomitant]
  5. SINGULAIR [Concomitant]
  6. AMARYL [Concomitant]
  7. LIPITOR [Concomitant]
  8. BENICAR [Concomitant]

REACTIONS (1)
  - DRUG INEFFECTIVE [None]
